FAERS Safety Report 12239378 (Version 1)
Quarter: 2016Q2

REPORT INFORMATION
  Report Type: Spontaneous
  Country: JP (occurrence: JP)
  Receive Date: 20160405
  Receipt Date: 20160405
  Transmission Date: 20160815
  Serious: Yes (Death, Other)
  Sender: FDA-Public Use
  Company Number: JP-CELGENE-JPN-2016035545

PATIENT
  Age: 69 Year
  Sex: Male

DRUGS (2)
  1. AMRUBICIN [Suspect]
     Active Substance: AMRUBICIN
     Route: 065
     Dates: end: 201408
  2. AMRUBICIN [Suspect]
     Active Substance: AMRUBICIN
     Indication: PROSTATE CANCER
     Route: 065
     Dates: start: 201304

REACTIONS (5)
  - Urinary retention [Unknown]
  - Pneumonia [Unknown]
  - Leukopenia [Unknown]
  - Death [Fatal]
  - Prostate cancer [Unknown]

NARRATIVE: CASE EVENT DATE: 2013
